FAERS Safety Report 8057994-5 (Version None)
Quarter: 2012Q1

REPORT INFORMATION
  Report Type: 
  Country: None (occurrence: None)
  Receive Date: 20120120
  Receipt Date: 20120113
  Transmission Date: 20120608
  Serious: Yes (Other)
  Sender: FDA-Public Use
  Company Number: US-PFIZER INC-2012010913

PATIENT
  Sex: Female
  Weight: 50.34 kg

DRUGS (1)
  1. PRISTIQ [Suspect]
     Indication: DEPRESSION
     Dosage: 50 MG, 1X/DAY
     Route: 048
     Dates: start: 20120111, end: 20120112

REACTIONS (6)
  - HEART RATE INCREASED [None]
  - FATIGUE [None]
  - MALAISE [None]
  - HYPERTENSION [None]
  - TREMOR [None]
  - DRY MOUTH [None]
